FAERS Safety Report 16724807 (Version 1)
Quarter: 2019Q3

REPORT INFORMATION
  Report Type: Spontaneous
  Country: DE (occurrence: DE)
  Receive Date: 20190821
  Receipt Date: 20190821
  Transmission Date: 20191005
  Serious: Yes (Death, Life-Threatening, Other)
  Sender: FDA-Public Use
  Company Number: DE-BAXTER-2019BAX015946

PATIENT
  Age: 8 Month
  Sex: Male
  Weight: 7.2 kg

DRUGS (12)
  1. HOLOXAN [Suspect]
     Active Substance: IFOSFAMIDE
     Dosage: WITH NACL FREEFLEX 50 ML
     Route: 042
     Dates: start: 20190710
  2. VINCRISTINE [Suspect]
     Active Substance: VINCRISTINE
     Dosage: WITH NACL ECOBAG 17 ML
     Route: 042
     Dates: start: 20190709
  3. ADRIAMYCIN [Suspect]
     Active Substance: DOXORUBICIN HYDROCHLORIDE
     Indication: PRODUCT USED FOR UNKNOWN INDICATION
     Route: 042
     Dates: start: 20190709
  4. FUROSEMIDE. [Concomitant]
     Active Substance: FUROSEMIDE
     Indication: PRODUCT USED FOR UNKNOWN INDICATION
     Route: 042
  5. MESNA. [Concomitant]
     Active Substance: MESNA
     Indication: PRODUCT USED FOR UNKNOWN INDICATION
     Route: 042
     Dates: start: 20190709
  6. VINCRISTINE [Suspect]
     Active Substance: VINCRISTINE
     Indication: PRODUCT USED FOR UNKNOWN INDICATION
     Dosage: WITH NACL ECOBAG 17 ML
     Route: 042
     Dates: start: 20190716
  7. ADRIAMYCIN [Suspect]
     Active Substance: DOXORUBICIN HYDROCHLORIDE
     Dosage: 05:00 A.M. AND 4:00 P.M.
     Route: 042
     Dates: start: 20190710
  8. KEVATRIL [Concomitant]
     Active Substance: GRANISETRON HYDROCHLORIDE
     Indication: ANTIEMETIC SUPPORTIVE CARE
     Dosage: 0. MG/D I.V/P.O
     Route: 065
  9. VINCRISTINE [Suspect]
     Active Substance: VINCRISTINE
     Route: 042
     Dates: start: 20190723
  10. ADRIAMYCIN [Suspect]
     Active Substance: DOXORUBICIN HYDROCHLORIDE
     Route: 042
     Dates: start: 20190711
  11. COTRIM [Concomitant]
     Active Substance: SULFAMETHOXAZOLE\TRIMETHOPRIM
     Indication: PRODUCT USED FOR UNKNOWN INDICATION
     Dosage: 2X20MG TMP
     Route: 065
  12. HOLOXAN [Suspect]
     Active Substance: IFOSFAMIDE
     Indication: PRODUCT USED FOR UNKNOWN INDICATION
     Dosage: WITH NACL FREEFLEX 50 ML
     Route: 042
     Dates: start: 20190709

REACTIONS (4)
  - Hypertension [Fatal]
  - Sepsis [Fatal]
  - Renal failure [Fatal]
  - Respiratory failure [Fatal]
